FAERS Safety Report 7925552-6 (Version None)
Quarter: 2011Q4

REPORT INFORMATION
  Report Type: 
  Country: None (occurrence: None)
  Receive Date: 20111118
  Receipt Date: 20110407
  Transmission Date: 20120403
  Serious: No
  Sender: FDA-Public Use
  Company Number: US-AMGEN-USASP2011018484

PATIENT
  Sex: Female

DRUGS (6)
  1. ENBREL [Suspect]
     Indication: PRODUCT USED FOR UNKNOWN INDICATION
     Dosage: 50 MG, QWK
     Route: 058
  2. BUSPIRONE [Concomitant]
     Dosage: 5 MG, UNK
  3. KLONOPIN [Concomitant]
     Dosage: 0.5 MG, UNK
  4. TOPAMAX [Concomitant]
     Dosage: 25 MG, UNK
  5. NABUMETONE [Concomitant]
     Dosage: 500 MG, UNK
  6. EFFEXOR XR [Concomitant]
     Dosage: 150 UNK, UNK

REACTIONS (2)
  - VAGINAL DISCHARGE [None]
  - DYSURIA [None]
